FAERS Safety Report 10061795 (Version 4)
Quarter: 2014Q2

REPORT INFORMATION
  Report Type: Spontaneous
  Country: US (occurrence: US)
  Receive Date: 20140407
  Receipt Date: 20140617
  Transmission Date: 20141212
  Serious: Yes (Other)
  Sender: FDA-Public Use
  Company Number: US-BIOGENIDEC-2014BI032838

PATIENT
  Sex: Female
  Weight: 73 kg

DRUGS (13)
  1. AVONEX [Suspect]
     Indication: MULTIPLE SCLEROSIS
     Route: 030
     Dates: start: 2002, end: 2003
  2. AVONEX [Suspect]
     Indication: MULTIPLE SCLEROSIS
     Route: 030
     Dates: start: 20121005, end: 20121105
  3. SOLU-MEDROL [Concomitant]
     Route: 030
     Dates: start: 20121105, end: 20121107
  4. CARBAMAZEPINE [Concomitant]
  5. CLONIDINE [Concomitant]
  6. HYDROCODONE-ACETAMINOPHEN [Concomitant]
  7. LISINOPRIL WITH HCTZ [Concomitant]
  8. NAPROXEN [Concomitant]
  9. OXYBUTYNIN CHLORIDE [Concomitant]
     Dates: end: 201210
  10. SUMATRIPTAN [Concomitant]
  11. VITAMIN D3 [Concomitant]
  12. LABETOLOL [Concomitant]
  13. DACLIZUMAB [Concomitant]

REACTIONS (3)
  - Gestational hypertension [Unknown]
  - Nonreassuring foetal heart rate pattern [Unknown]
  - Oligohydramnios [Unknown]
